FAERS Safety Report 23137850 (Version 1)
Quarter: 2023Q4

REPORT INFORMATION
  Report Type: Other
  Country: JP (occurrence: JP)
  Receive Date: 20231102
  Receipt Date: 20231102
  Transmission Date: 20240109
  Serious: Yes (Other)
  Sender: FDA-Public Use
  Company Number: JP-ALVOGEN-2023092485

PATIENT
  Sex: Male
  Weight: 52 kg

DRUGS (6)
  1. DAPSONE [Suspect]
     Active Substance: DAPSONE
     Indication: Dermatitis exfoliative generalised
     Dosage: 50 MG/DAY
  2. LEVOCETIRIZINE [Concomitant]
     Active Substance: LEVOCETIRIZINE
     Indication: Product used for unknown indication
  3. BEPOTASTINE [Concomitant]
     Active Substance: BEPOTASTINE
     Indication: Product used for unknown indication
  4. SUVOREXANT [Concomitant]
     Active Substance: SUVOREXANT
     Indication: Product used for unknown indication
  5. AMLODIPINE [Concomitant]
     Active Substance: AMLODIPINE BESYLATE
     Indication: Product used for unknown indication
  6. CANDESARTAN [Concomitant]
     Active Substance: CANDESARTAN
     Indication: Product used for unknown indication

REACTIONS (3)
  - Haemolytic anaemia [Recovering/Resolving]
  - Heinz bodies [Recovering/Resolving]
  - Off label use [Unknown]
